FAERS Safety Report 9262351 (Version 2)
Quarter: 2013Q2

REPORT INFORMATION
  Report Type: Spontaneous
  Country: GB (occurrence: GB)
  Receive Date: 20130430
  Receipt Date: 20130516
  Transmission Date: 20140414
  Serious: Yes (Other)
  Sender: FDA-Public Use
  Company Number: PHFR2012GB004217

PATIENT
  Sex: Female

DRUGS (1)
  1. CLOZARIL [Suspect]
     Dosage: UNK
     Route: 048
     Dates: start: 20081020, end: 20120721

REACTIONS (3)
  - Personality disorder [Recovering/Resolving]
  - Affect lability [Recovering/Resolving]
  - Drug ineffective [Unknown]
